FAERS Safety Report 7267536-X (Version None)
Quarter: 2011Q1

REPORT INFORMATION
  Report Type: 
  Country: None (occurrence: None)
  Receive Date: 20110201
  Receipt Date: 20110124
  Transmission Date: 20110831
  Serious: Yes (Hospitalization, Other)
  Sender: FDA-Public Use
  Company Number: US-ASTRAZENECA-2011SE04476

PATIENT
  Age: 19418 Day
  Sex: Male

DRUGS (1)
  1. CRESTOR [Suspect]
     Route: 048

REACTIONS (5)
  - DEPRESSION [None]
  - ANEURYSM [None]
  - EATING DISORDER [None]
  - WEIGHT DECREASED [None]
  - CORONARY ARTERY BYPASS [None]
